FAERS Safety Report 6563239-5 (Version None)
Quarter: 2010Q1

REPORT INFORMATION
  Report Type: 
  Country: None (occurrence: None)
  Receive Date: 20100130
  Receipt Date: 20091207
  Transmission Date: 20100710
  Serious: No
  Sender: FDA-Public Use
  Company Number: US-ABBOTT-09P-163-0613016-00

PATIENT
  Sex: Female
  Weight: 81.72 kg

DRUGS (8)
  1. HUMIRA [Suspect]
     Indication: CROHN'S DISEASE
     Route: 058
     Dates: start: 20070101
  2. HUMIRA [Suspect]
     Route: 058
     Dates: start: 20091203
  3. PENTASA [Concomitant]
     Indication: CROHN'S DISEASE
     Route: 048
  4. NEXIUM [Concomitant]
     Indication: DRUG USE FOR UNKNOWN INDICATION
  5. KLONOPIN [Concomitant]
     Indication: DRUG USE FOR UNKNOWN INDICATION
  6. PHENERGAN HCL [Concomitant]
     Indication: DRUG USE FOR UNKNOWN INDICATION
  7. ZYRTEC [Concomitant]
     Indication: DRUG USE FOR UNKNOWN INDICATION
  8. VITAMIN TAB [Concomitant]
     Indication: DRUG USE FOR UNKNOWN INDICATION

REACTIONS (4)
  - EXPIRED DRUG ADMINISTERED [None]
  - HEADACHE [None]
  - INFLUENZA LIKE ILLNESS [None]
  - PAIN IN EXTREMITY [None]
